FAERS Safety Report 5142943-X (Version None)
Quarter: 2006Q4

REPORT INFORMATION
  Report Type: 
  Country: None (occurrence: None)
  Receive Date: 20061030
  Receipt Date: 20061019
  Transmission Date: 20070319
  Serious: Yes (Other)
  Sender: FDA-Public Use
  Company Number: 229010

PATIENT

DRUGS (2)
  1. LUCENTIS [Suspect]
     Indication: MACULAR DEGENERATION
     Dosage: 0.3 MG, SINGLE
  2. VISUDYNE [Suspect]
     Indication: MACULAR DEGENERATION

REACTIONS (1)
  - DETACHMENT OF RETINAL PIGMENT EPITHELIUM [None]
